FAERS Safety Report 9976833 (Version 1)
Quarter: 2014Q1

REPORT INFORMATION
  Report Type: Report from Study
  Country: US (occurrence: US)
  Receive Date: 20140306
  Receipt Date: 20140306
  Transmission Date: 20141002
  Serious: No
  Sender: FDA-Public Use
  Company Number: US-ABBVIE-13P-163-1167652-00

PATIENT
  Sex: Male
  Weight: 76.73 kg

DRUGS (4)
  1. HUMIRA [Suspect]
     Indication: PSORIATIC ARTHROPATHY
     Dates: start: 2009
  2. LISINOPRIL [Concomitant]
     Indication: HYPERTENSION
  3. HYDROCODONE [Concomitant]
     Indication: ARTHRALGIA
  4. IBUPROFEN [Concomitant]
     Indication: ARTHRALGIA

REACTIONS (5)
  - Onychomadesis [Recovering/Resolving]
  - Onychomycosis [Recovered/Resolved]
  - Rash [Recovered/Resolved]
  - Rash [Recovered/Resolved]
  - Nail discolouration [Recovered/Resolved]
